FAERS Safety Report 22335373 (Version 2)
Quarter: 2023Q2

REPORT INFORMATION
  Report Type: Spontaneous
  Country: FR (occurrence: FR)
  Receive Date: 20230518
  Receipt Date: 20230608
  Transmission Date: 20230721
  Serious: Yes (Other)
  Sender: FDA-Public Use
  Company Number: None

PATIENT
  Age: 65 Year
  Sex: Female

DRUGS (5)
  1. SPIRONOLACTONE [Suspect]
     Active Substance: SPIRONOLACTONE
     Indication: Hepatic failure
     Dosage: 50 MILLIGRAM DAILY; 50MG IN THE MORNING
     Route: 065
     Dates: start: 202211
  2. CARVEDILOL [Suspect]
     Active Substance: CARVEDILOL
     Indication: Hepatic failure
     Dosage: 12.5 MILLIGRAM DAILY; 6.25 MG MORNING AND EVENING
     Route: 065
     Dates: start: 202212
  3. FUROSEMIDE [Suspect]
     Active Substance: FUROSEMIDE
     Indication: Hepatic failure
     Dosage: 1 DOSAGE FORMS DAILY; 1 TAB OF 20 MG IN THE MORNING
     Route: 065
     Dates: start: 202211
  4. PROGRAF [Suspect]
     Active Substance: TACROLIMUS
     Indication: Prophylaxis against transplant rejection
     Dosage: 8 MILLIGRAM DAILY; 4 MG MORNING AND EVENING
     Route: 065
     Dates: start: 202303
  5. CELLCEPT [Suspect]
     Active Substance: MYCOPHENOLATE MOFETIL
     Indication: Prophylaxis against transplant rejection
     Dosage: 1500 MILLIGRAM DAILY; 750 MG MORNING AND EVENING
     Route: 065
     Dates: start: 202303

REACTIONS (1)
  - Pericarditis [Recovering/Resolving]

NARRATIVE: CASE EVENT DATE: 20230416
